FAERS Safety Report 6359729-0 (Version None)
Quarter: 2009Q3

REPORT INFORMATION
  Report Type: 
  Country: None (occurrence: None)
  Receive Date: 20090917
  Receipt Date: 20090907
  Transmission Date: 20100115
  Serious: Yes (Other)
  Sender: FDA-Public Use
  Company Number: PT-MERCK-0909PRT00004

PATIENT
  Age: 66 Year
  Sex: Female

DRUGS (10)
  1. FOSAMAX PLUS D [Suspect]
     Indication: OSTEOPOROSIS
     Route: 048
     Dates: start: 20060101, end: 20090401
  2. LISINOPRIL [Concomitant]
     Indication: HYPERTENSION
     Route: 048
  3. ASPIRIN [Concomitant]
     Indication: PROPHYLAXIS
     Route: 048
  4. GLICLAZIDE [Concomitant]
     Indication: DIABETES MELLITUS
     Route: 048
  5. NITROGLYCERIN [Concomitant]
     Route: 065
  6. DIAZEPAM [Concomitant]
     Route: 065
  7. CIMETIDINE [Concomitant]
     Route: 065
  8. DICLOFENAC [Concomitant]
     Indication: PAIN
     Route: 048
  9. VALERIAN [Concomitant]
     Route: 048
  10. METFORMIN PAMOATE [Concomitant]
     Indication: DIABETES MELLITUS
     Route: 048

REACTIONS (2)
  - OSTEITIS [None]
  - OSTEOMYELITIS [None]
